FAERS Safety Report 7844742-4 (Version None)
Quarter: 2011Q4

REPORT INFORMATION
  Report Type: 
  Country: None (occurrence: None)
  Receive Date: 20111025
  Receipt Date: 20111006
  Transmission Date: 20120403
  Serious: No
  Sender: FDA-Public Use
  Company Number: US-ROXANE LABORATORIES, INC.-2011-RO-01428RO

PATIENT
  Sex: Male

DRUGS (8)
  1. DIOVAN [Concomitant]
     Indication: HYPERTENSION
  2. LEVAQUIN [Concomitant]
  3. TEKTURNA [Concomitant]
  4. LOVENOX [Concomitant]
  5. PRIMIDONE [Suspect]
     Indication: TREMOR
  6. ASPIRIN [Concomitant]
  7. RAMIPRIL [Suspect]
     Indication: HYPERTENSION
     Dosage: 1.25 MG
     Route: 048
  8. LIPITOR [Concomitant]

REACTIONS (3)
  - BURNING SENSATION [None]
  - OEDEMA PERIPHERAL [None]
  - NEUROPATHY PERIPHERAL [None]
